FAERS Safety Report 6211631-0 (Version None)
Quarter: 2009Q2

REPORT INFORMATION
  Report Type: 
  Country: None (occurrence: None)
  Receive Date: 20090602
  Receipt Date: 20090521
  Transmission Date: 20091009
  Serious: Yes (Hospitalization)
  Sender: FDA-Public Use
  Company Number: A0718449A

PATIENT
  Age: 58 Year
  Sex: Male
  Weight: 94.1 kg

DRUGS (10)
  1. AVANDIA [Suspect]
     Dosage: 2MG TWICE PER DAY
     Route: 048
     Dates: start: 20040517, end: 20070501
  2. METFORMIN HYDROCHLORIDE [Concomitant]
     Dates: start: 20041101
  3. AMARYL [Concomitant]
     Dates: start: 20040101, end: 20060101
  4. DIABETA [Concomitant]
     Dates: start: 20060201, end: 20070601
  5. LIPITOR [Concomitant]
     Dates: start: 20040401
  6. LISINOPRIL [Concomitant]
  7. ALTACE [Concomitant]
  8. MULTI-VITAMIN [Concomitant]
  9. GLYBURIDE [Concomitant]
  10. ASPIRIN [Concomitant]

REACTIONS (1)
  - MYOCARDIAL INFARCTION [None]
